FAERS Safety Report 18297082 (Version 1)
Quarter: 2020Q3

REPORT INFORMATION
  Report Type: Spontaneous
  Country: CA (occurrence: CA)
  Receive Date: 20200922
  Receipt Date: 20200922
  Transmission Date: 20201103
  Serious: Yes (Other)
  Sender: FDA-Public Use
  Company Number: CA-FRESENIUS KABI-FK202009637

PATIENT
  Age: 19 Year
  Sex: Male
  Weight: 99 kg

DRUGS (4)
  1. PEGASPARGASE [Suspect]
     Active Substance: PEGASPARGASE
     Indication: ACUTE LYMPHOCYTIC LEUKAEMIA RECURRENT
     Dosage: ONCASPAR 3750 UNITS / 5 ML.SINGLE USE VIAL
     Route: 065
  2. MITOXANTRONE [Suspect]
     Active Substance: MITOXANTRONE HYDROCHLORIDE
     Indication: ACUTE LYMPHOCYTIC LEUKAEMIA RECURRENT
     Route: 065
  3. METHOTREXATE. [Suspect]
     Active Substance: METHOTREXATE
     Indication: ACUTE LYMPHOCYTIC LEUKAEMIA RECURRENT
     Route: 065
  4. VINCRISTINE SULFATE. [Suspect]
     Active Substance: VINCRISTINE SULFATE
     Indication: ACUTE LYMPHOCYTIC LEUKAEMIA RECURRENT
     Route: 065

REACTIONS (1)
  - Febrile neutropenia [Recovering/Resolving]
